FAERS Safety Report 10721227 (Version 1)
Quarter: 2015Q1

REPORT INFORMATION
  Report Type: Spontaneous
  Country: DE (occurrence: DE)
  Receive Date: 20150119
  Receipt Date: 20150119
  Transmission Date: 20150721
  Serious: Yes (Other)
  Sender: FDA-Public Use
  Company Number: DE-AMGEN-DEUSP2014094993

PATIENT
  Age: 60 Year
  Sex: Female
  Weight: 54 kg

DRUGS (8)
  1. CHLOROQUIN                         /00001002/ [Concomitant]
     Dosage: UNK
  2. DEKRISTOL [Concomitant]
     Active Substance: CHOLECALCIFEROL
     Dosage: 20000 UNK, Q2WK
     Dates: start: 2013
  3. QUENSYL [Concomitant]
     Active Substance: HYDROXYCHLOROQUINE
     Indication: POLYARTHRITIS
     Dosage: UNK UNK, BID
     Dates: start: 2009
  4. PANTOPRAZOLE [Concomitant]
     Active Substance: PANTOPRAZOLE SODIUM
     Indication: GASTROOESOPHAGEAL REFLUX DISEASE
     Dosage: 90 UNK, BID
     Dates: start: 2010
  5. LODOTRA [Concomitant]
     Active Substance: PREDNISONE
     Dosage: 1 MG, UNK
  6. L-THYROXIN [Concomitant]
     Active Substance: LEVOTHYROXINE SODIUM
     Indication: AUTOIMMUNE THYROIDITIS
     Dosage: 50 UNK, QD
     Dates: start: 2000
  7. OXYDIN [Concomitant]
     Indication: PAIN
     Dosage: 60 UNK, BID
     Dates: start: 2009
  8. PROLIA [Suspect]
     Active Substance: DENOSUMAB
     Indication: OSTEOPOROSIS
     Dosage: 60 MG, Q6MO
     Route: 058
     Dates: start: 201310, end: 201410

REACTIONS (2)
  - Pollakiuria [Unknown]
  - Urinary retention [Unknown]

NARRATIVE: CASE EVENT DATE: 201310
